FAERS Safety Report 20708947 (Version 2)
Quarter: 2022Q2

REPORT INFORMATION
  Report Type: Spontaneous
  Country: US (occurrence: US)
  Receive Date: 20220414
  Receipt Date: 20220426
  Transmission Date: 20220721
  Serious: Yes (Hospitalization)
  Sender: FDA-Public Use
  Company Number: US-TEVA-2022-US-2025913

PATIENT
  Age: 36 Year
  Sex: Female

DRUGS (3)
  1. METHYLPREDNISOLONE [Suspect]
     Active Substance: METHYLPREDNISOLONE
     Indication: Relapsing-remitting multiple sclerosis
     Dosage: FIVE DAYS OF HIGH-DOSE INTRAVENOUS METHYLPREDNISOLONE AFTER EACH RELAPSE
     Route: 042
  2. PREDNISONE [Suspect]
     Active Substance: PREDNISONE
     Indication: Relapsing-remitting multiple sclerosis
     Dosage: ORAL PREDNISONE TAPER AFTER EACH RELAPSE
     Route: 048
  3. GLATIRAMER ACETATE [Suspect]
     Active Substance: GLATIRAMER ACETATE
     Indication: Relapsing-remitting multiple sclerosis
     Route: 065

REACTIONS (7)
  - Herpes simplex reactivation [Recovering/Resolving]
  - Myelitis [Recovering/Resolving]
  - Cauda equina syndrome [Recovering/Resolving]
  - Anal incontinence [Recovering/Resolving]
  - Urinary incontinence [Recovering/Resolving]
  - Paraplegia [Not Recovered/Not Resolved]
  - Hypotonia [Not Recovered/Not Resolved]
